FAERS Safety Report 9565158 (Version 1)
Quarter: 2013Q3

REPORT INFORMATION
  Report Type: Spontaneous
  Country: US (occurrence: US)
  Receive Date: 20130930
  Receipt Date: 20130930
  Transmission Date: 20140515
  Serious: No
  Sender: FDA-Public Use
  Company Number: US-TEVA-434839USA

PATIENT
  Sex: Female

DRUGS (3)
  1. AZILECT [Suspect]
     Indication: PARKINSON^S DISEASE
  2. CLONAZEPAM [Concomitant]
  3. SINEMET [Concomitant]
     Indication: PARKINSON^S DISEASE

REACTIONS (1)
  - Dyspepsia [Unknown]
